FAERS Safety Report 7235140-5 (Version None)
Quarter: 2011Q1

REPORT INFORMATION
  Report Type: 
  Country: None (occurrence: None)
  Receive Date: 20110107
  Receipt Date: 20101227
  Transmission Date: 20110831
  Serious: Yes (Death, Hospitalization)
  Sender: FDA-Public Use
  Company Number: UTC-003705

PATIENT
  Age: 72 Year
  Sex: Female

DRUGS (1)
  1. REMODULIN [Suspect]
     Indication: PULMONARY ARTERIAL HYPERTENSION
     Dosage: 15.84 UG/KG 0.011 UG/KG,1 IN 1 MIN),INJECTION
     Route: 042

REACTIONS (3)
  - RESPIRATORY ARREST [None]
  - DEVICE MALFUNCTION [None]
  - SYNCOPE [None]
